FAERS Safety Report 21476691 (Version 6)
Quarter: 2023Q1

REPORT INFORMATION
  Report Type: Report from Study
  Country: US (occurrence: US)
  Receive Date: 20221019
  Receipt Date: 20230123
  Transmission Date: 20230418
  Serious: Yes (Other)
  Sender: FDA-Public Use
  Company Number: US-ABBVIE-22K-163-4494150-00

PATIENT
  Sex: Female
  Weight: 72 kg

DRUGS (9)
  1. HUMIRA [Suspect]
     Active Substance: ADALIMUMAB
     Indication: Rheumatoid arthritis
     Dosage: CITRATE FREE?FORM STRENGTH 40 MILLIGRAMS
     Route: 058
     Dates: start: 2019
  2. HUMIRA [Suspect]
     Active Substance: ADALIMUMAB
     Dosage: CITRATE FREE
     Route: 058
  3. METFORMIN [Concomitant]
     Active Substance: METFORMIN HYDROCHLORIDE
     Indication: Diabetes mellitus
  4. RISEDRONATE SODIUM [Concomitant]
     Active Substance: RISEDRONATE SODIUM
     Indication: Osteopenia
  5. MODERNA COVID-19 VACCINE [Concomitant]
     Active Substance: ELASOMERAN
     Indication: COVID-19 immunisation
     Dosage: TIME INTERVAL: TOTAL
     Route: 030
  6. MELOXICAM [Concomitant]
     Active Substance: MELOXICAM
     Indication: Arthritis
  7. METOPROLOL [Concomitant]
     Active Substance: METOPROLOL
     Indication: Hypertension
  8. ATORVASTATIN [Concomitant]
     Active Substance: ATORVASTATIN
     Indication: Blood cholesterol
  9. TIMOLOL MALEATE [Concomitant]
     Active Substance: TIMOLOL MALEATE
     Indication: Ocular discomfort

REACTIONS (24)
  - Meniscus injury [Recovering/Resolving]
  - Pain in extremity [Unknown]
  - Paraesthesia [Unknown]
  - Patella fracture [Recovering/Resolving]
  - Burning sensation [Recovering/Resolving]
  - Knee operation [Recovering/Resolving]
  - Musculoskeletal stiffness [Unknown]
  - Knee operation [Unknown]
  - Fall [Recovering/Resolving]
  - Asthenia [Recovering/Resolving]
  - Pain [Unknown]
  - Burning sensation [Unknown]
  - Gait disturbance [Recovered/Resolved]
  - Cystoid macular oedema [Recovering/Resolving]
  - Swelling [Unknown]
  - Injury [Recovered/Resolved]
  - Hypoaesthesia [Unknown]
  - Joint swelling [Recovering/Resolving]
  - Fall [Recovered/Resolved]
  - Impaired healing [Recovering/Resolving]
  - Gait disturbance [Recovering/Resolving]
  - Acne [Unknown]
  - Skin exfoliation [Recovering/Resolving]
  - Injury [Recovering/Resolving]

NARRATIVE: CASE EVENT DATE: 20210101
